FAERS Safety Report 22371391 (Version 1)
Quarter: 2023Q2

REPORT INFORMATION
  Report Type: Report from Study
  Country: UG (occurrence: UG)
  Receive Date: 20230526
  Receipt Date: 20230526
  Transmission Date: 20230721
  Serious: Yes (Other)
  Sender: FDA-Public Use
  Company Number: UG-JNJFOC-20230538346

PATIENT

DRUGS (8)
  1. BEDAQUILINE [Suspect]
     Active Substance: BEDAQUILINE
     Indication: Tuberculosis
     Route: 048
  2. LEVOFLOXACIN [Suspect]
     Active Substance: LEVOFLOXACIN
     Indication: Tuberculosis
     Route: 065
  3. ETHIONAMIDE [Suspect]
     Active Substance: ETHIONAMIDE
     Indication: Tuberculosis
     Route: 065
  4. CYCLOSERINE [Suspect]
     Active Substance: CYCLOSERINE
     Indication: Tuberculosis
     Route: 065
  5. PYRAZINAMIDE [Suspect]
     Active Substance: PYRAZINAMIDE
     Indication: Tuberculosis
     Route: 065
  6. MOXIFLOXACIN [Suspect]
     Active Substance: MOXIFLOXACIN
     Indication: Tuberculosis
     Route: 065
  7. CLOFAZIMINE [Suspect]
     Active Substance: CLOFAZIMINE
     Indication: Tuberculosis
     Route: 065
  8. LINEZOLID [Suspect]
     Active Substance: LINEZOLID
     Indication: Tuberculosis
     Route: 065

REACTIONS (31)
  - Electrocardiogram QT prolonged [Unknown]
  - Hypothyroidism [Unknown]
  - Seizure [Unknown]
  - Neutropenia [Unknown]
  - Leukopenia [Unknown]
  - Pancytopenia [Unknown]
  - Hepatitis fulminant [Unknown]
  - Acute kidney injury [Unknown]
  - Thrombocytopenia [Unknown]
  - Transaminases increased [Unknown]
  - Arthralgia [Unknown]
  - Diarrhoea [Unknown]
  - Dizziness [Unknown]
  - Myalgia [Unknown]
  - Back pain [Unknown]
  - Gynaecomastia [Unknown]
  - Joint swelling [Unknown]
  - Gastritis [Unknown]
  - Electrolyte imbalance [Unknown]
  - Salivary hypersecretion [Unknown]
  - Dysgeusia [Unknown]
  - Constipation [Unknown]
  - Insomnia [Unknown]
  - Psychotic disorder [Unknown]
  - Anxiety [Unknown]
  - Panic attack [Unknown]
  - Urticaria [Unknown]
  - Anaemia [Unknown]
  - Lymphopenia [Unknown]
  - Palpitations [Unknown]
  - Oedema peripheral [Unknown]
